FAERS Safety Report 9154187 (Version 1)
Quarter: 2013Q1

REPORT INFORMATION
  Report Type: Spontaneous
  Country: US (occurrence: US)
  Receive Date: 20130311
  Receipt Date: 20130311
  Transmission Date: 20140127
  Serious: Yes (Hospitalization)
  Sender: FDA-Public Use
  Company Number: US-PFIZER INC-2013079758

PATIENT
  Age: 76 Year
  Sex: Female
  Weight: 55.78 kg

DRUGS (5)
  1. NEURONTIN [Suspect]
     Indication: RESTLESS LEGS SYNDROME
     Dosage: 300 MG, 1X/DAY
  2. GLUCOTROL XL [Suspect]
     Indication: DIABETES MELLITUS
     Dosage: UNK, 1X/DAY
     Route: 048
  3. GLUCOTROL XL [Suspect]
     Dosage: 5 MG, UNK
  4. ZOLOFT [Suspect]
     Indication: DEPRESSION
     Dosage: 100 MG, 1X/DAY
     Route: 048
  5. DIGOXIN [Concomitant]
     Indication: CARDIAC DISORDER
     Dosage: UNK

REACTIONS (2)
  - Road traffic accident [Unknown]
  - Off label use [Unknown]
